FAERS Safety Report 23621348 (Version 1)
Quarter: 2024Q1

REPORT INFORMATION
  Report Type: Spontaneous
  Country: CA (occurrence: None)
  Receive Date: 20240312
  Receipt Date: 20240312
  Transmission Date: 20240409
  Serious: Yes (Other)
  Sender: FDA-Public Use
  Company Number: CA-ROCHE-3518081

PATIENT
  Age: 89 Year
  Sex: Male
  Weight: 77 kg

DRUGS (3)
  1. PIRFENIDONE [Suspect]
     Active Substance: PIRFENIDONE
     Indication: Interstitial lung disease
     Route: 048
  2. PIRFENIDONE [Suspect]
     Active Substance: PIRFENIDONE
     Indication: Idiopathic pulmonary fibrosis
     Dosage: DOSAGE FORM: NOT SPECIFIED
     Route: 048
  3. ALBUTEROL [Concomitant]
     Active Substance: ALBUTEROL
     Indication: Product used for unknown indication
     Route: 065

REACTIONS (13)
  - Aortic valve calcification [Unknown]
  - Arteriosclerosis [Unknown]
  - Atelectasis [Unknown]
  - Bronchiectasis [Unknown]
  - Disease progression [Unknown]
  - Drug ineffective [Unknown]
  - Forced vital capacity decreased [Unknown]
  - Interstitial lung disease [Unknown]
  - Lung cyst [Unknown]
  - Lung diffusion test abnormal [Unknown]
  - Pulmonary fibrosis [Unknown]
  - Pulmonary mass [Unknown]
  - Renal cyst [Unknown]
